FAERS Safety Report 9880959 (Version 1)
Quarter: 2014Q1

REPORT INFORMATION
  Report Type: Spontaneous
  Country: US (occurrence: None)
  Receive Date: 20140206
  Receipt Date: 20140206
  Transmission Date: 20141002
  Serious: Yes (Hospitalization)
  Sender: FDA-Public Use
  Company Number: None

PATIENT
  Age: 7 Year
  Sex: Male
  Weight: 24 kg

DRUGS (2)
  1. FOCALIN [Suspect]
     Indication: ATTENTION DEFICIT/HYPERACTIVITY DISORDER
     Route: 048
  2. FOCALIN [Suspect]
     Indication: ABNORMAL BEHAVIOUR
     Route: 048

REACTIONS (3)
  - Scrotal disorder [None]
  - Rash pruritic [None]
  - Erection increased [None]
